FAERS Safety Report 10392242 (Version 1)
Quarter: 2014Q3

REPORT INFORMATION
  Report Type: Report from Study
  Country: US (occurrence: US)
  Receive Date: 20140819
  Receipt Date: 20140819
  Transmission Date: 20150326
  Serious: Yes (Other)
  Sender: FDA-Public Use
  Company Number: US-ROCHE-1450702

PATIENT
  Sex: Male
  Weight: 23.06 kg

DRUGS (3)
  1. MELATONIN [Concomitant]
     Active Substance: MELATONIN
     Dosage: AT BED TIME
     Route: 048
  2. NUTROPIN [Suspect]
     Active Substance: SOMATROPIN
     Indication: GROWTH HORMONE DEFICIENCY
     Dosage: DAILY
     Route: 058
     Dates: start: 201304
  3. NUTROPIN [Suspect]
     Active Substance: SOMATROPIN
     Dosage: DAILY
     Route: 058
     Dates: start: 201404

REACTIONS (8)
  - Fatigue [Unknown]
  - Antinuclear antibody positive [Unknown]
  - Decreased appetite [Unknown]
  - Migraine [Unknown]
  - Dizziness [Unknown]
  - Arthralgia [Unknown]
  - Headache [Unknown]
  - Myalgia [Unknown]
